FAERS Safety Report 5000542-4 (Version None)
Quarter: 2006Q2

REPORT INFORMATION
  Report Type: 
  Country: None (occurrence: None)
  Receive Date: 20060512
  Receipt Date: 20050825
  Transmission Date: 20061013
  Serious: Yes (Other)
  Sender: FDA-Public Use
  Company Number: US-BRISTOL-MYERS SQUIBB COMPANY-13090741

PATIENT
  Age: 17 Year
  Sex: Female

DRUGS (4)
  1. CYTOXAN [Suspect]
     Indication: HODGKIN'S DISEASE
     Route: 042
     Dates: start: 20050821, end: 20050821
  2. MESNA [Concomitant]
     Dates: start: 20050821, end: 20050821
  3. BENADRYL [Concomitant]
     Indication: PREMEDICATION
     Dates: start: 20050821, end: 20050821
  4. SOLU-CORTEF [Concomitant]
     Indication: PREMEDICATION
     Dates: start: 20050821, end: 20050821

REACTIONS (3)
  - ANXIETY [None]
  - FLUSHING [None]
  - HEADACHE [None]
